FAERS Safety Report 16920884 (Version 2)
Quarter: 2019Q4

REPORT INFORMATION
  Report Type: Report from Study
  Country: TW (occurrence: TW)
  Receive Date: 20191015
  Receipt Date: 20191023
  Transmission Date: 20200122
  Serious: Yes (Hospitalization)
  Sender: FDA-Public Use
  Company Number: TW-EISAI MEDICAL RESEARCH-EC-2019-063428

PATIENT
  Age: 47 Year
  Sex: Female
  Weight: 64.4 kg

DRUGS (4)
  1. LENVATINIB [Suspect]
     Active Substance: LENVATINIB
     Route: 048
     Dates: start: 20191016
  2. ERIBULIN [Suspect]
     Active Substance: ERIBULIN
     Indication: LEIOMYOSARCOMA
     Route: 041
     Dates: start: 20190925, end: 2019
  3. LENVATINIB [Suspect]
     Active Substance: LENVATINIB
     Indication: LEIOMYOSARCOMA
     Route: 048
     Dates: start: 20190925, end: 20191008
  4. ERIBULIN [Suspect]
     Active Substance: ERIBULIN
     Route: 041
     Dates: start: 20191016

REACTIONS (1)
  - Febrile neutropenia [Recovered/Resolved]

NARRATIVE: CASE EVENT DATE: 20191008
